FAERS Safety Report 7201220-3 (Version None)
Quarter: 2010Q4

REPORT INFORMATION
  Report Type: 
  Country: None (occurrence: None)
  Receive Date: 20101229
  Receipt Date: 20101217
  Transmission Date: 20110411
  Serious: Yes (Hospitalization)
  Sender: FDA-Public Use
  Company Number: US-ELI_LILLY_AND_COMPANY-US201008004322

PATIENT
  Sex: Female

DRUGS (13)
  1. FORTEO [Suspect]
     Indication: OSTEOPOROSIS
     Dosage: 20 UG, DAILY (1/D)
     Route: 058
     Dates: start: 20100414, end: 20101001
  2. ASPIRIN [Concomitant]
     Dosage: UNK, UNKNOWN
     Route: 065
  3. PREVACID [Concomitant]
     Dosage: UNK, UNKNOWN
     Route: 065
  4. PLAVIX [Concomitant]
     Dosage: 75 MG, DAILY (1/D)
     Route: 065
  5. ALLEGRA [Concomitant]
     Dosage: 180 MG, DAILY (1/D)
     Route: 065
  6. LISINOPRIL [Concomitant]
     Dosage: 110 MG, DAILY (1/D)
     Route: 065
  7. KLOR-CON [Concomitant]
     Dosage: 20 MG, DAILY (1/D)
     Route: 065
  8. CRESTOR [Concomitant]
     Dosage: 10 MG, DAILY (1/D)
     Route: 065
  9. CALCITONIN [Concomitant]
     Dosage: UNK, UNKNOWN
     Route: 065
  10. GLYCOLAX [Concomitant]
     Dosage: UNK, EACH EVENING
     Route: 065
  11. RESTASIS [Concomitant]
     Dosage: UNK, UNKNOWN
     Route: 065
  12. ASTELIN [Concomitant]
     Dosage: UNK, UNKNOWN
     Route: 065
  13. SPIRIVA [Concomitant]
     Dosage: UNK, UNKNOWN
     Route: 065

REACTIONS (8)
  - BLOOD CALCIUM INCREASED [None]
  - BONE PAIN [None]
  - DYSGEUSIA [None]
  - GAIT DISTURBANCE [None]
  - JOINT SWELLING [None]
  - OSTEOARTHRITIS [None]
  - PAIN [None]
  - WEIGHT DECREASED [None]
